FAERS Safety Report 5879385-5 (Version None)
Quarter: 2008Q3

REPORT INFORMATION
  Report Type: 
  Country: None (occurrence: None)
  Receive Date: 20080912
  Receipt Date: 20080905
  Transmission Date: 20090109
  Serious: Yes (Hospitalization)
  Sender: FDA-Public Use
  Company Number: B0509629A

PATIENT
  Age: 12 Year
  Sex: Male
  Weight: 27 kg

DRUGS (2)
  1. VENTOLIN [Suspect]
     Indication: ASTHMA
     Route: 055
  2. SERETIDE DISKUS [Concomitant]
     Indication: ASTHMA
     Route: 055

REACTIONS (3)
  - MALAISE [None]
  - OVERDOSE [None]
  - PHARMACEUTICAL PRODUCT COMPLAINT [None]
